FAERS Safety Report 7864905-1 (Version None)
Quarter: 2011Q4

REPORT INFORMATION
  Report Type: 
  Country: None (occurrence: None)
  Receive Date: 20111028
  Receipt Date: 20100916
  Transmission Date: 20120403
  Serious: No
  Sender: FDA-Public Use
  Company Number: US-GLAXOSMITHKLINE-A0881473A

PATIENT
  Age: 62 Year
  Sex: Female

DRUGS (5)
  1. IMURAN [Concomitant]
  2. HYDROCHLOROTHIAZIDE [Concomitant]
  3. XANAX [Concomitant]
     Dates: start: 20100915
  4. ADVAIR DISKUS 100/50 [Suspect]
     Indication: ASTHMA
     Dosage: 1PUFF SINGLE DOSE
     Route: 055
     Dates: start: 20100916
  5. ERYSOL [Concomitant]

REACTIONS (1)
  - PRODUCTIVE COUGH [None]
